FAERS Safety Report 21613915 (Version 1)
Quarter: 2022Q4

REPORT INFORMATION
  Report Type: Spontaneous
  Country: US (occurrence: None)
  Receive Date: 20221117
  Receipt Date: 20221117
  Transmission Date: 20230113
  Serious: No
  Sender: FDA-Public Use
  Company Number: None

PATIENT
  Age: 72 Year
  Sex: Female

DRUGS (11)
  1. CAPECITABINE [Suspect]
     Active Substance: CAPECITABINE
     Indication: Colon cancer
     Dosage: FREQUENCY : TWICE A DAY;?
     Route: 048
     Dates: start: 20220808
  2. ACETAMINOPOHEN [Concomitant]
  3. DIAZEPAM [Concomitant]
  4. CLARITIN [Concomitant]
     Active Substance: LORATADINE
  5. FAMOTIDINE [Concomitant]
  6. OXALIPLATIN (D/C) [Concomitant]
  7. SCOPOLAMINE [Concomitant]
  8. ONDANSETRON [Concomitant]
  9. POTASSIUM [Concomitant]
     Active Substance: POTASSIUM
  10. LORAZEPAM [Concomitant]
  11. PANTOPRAZOLE [Concomitant]

REACTIONS (2)
  - Nausea [None]
  - Vomiting [None]

NARRATIVE: CASE EVENT DATE: 20221031
